FAERS Safety Report 9417711 (Version 1)
Quarter: 2013Q3

REPORT INFORMATION
  Report Type: Spontaneous
  Country: CA (occurrence: None)
  Receive Date: 20130719
  Receipt Date: 20130719
  Transmission Date: 20140515
  Serious: Yes (Other)
  Sender: FDA-Public Use
  Company Number: SYM-2013-06891

PATIENT
  Age: 77 Year
  Sex: Male

DRUGS (13)
  1. DILTIAZEM HYDROCHLORIDE [Suspect]
     Indication: PRODUCT USED FOR UNKNOWN INDICATION
  2. SILDENAFIL CITRATE [Suspect]
     Indication: PULMONARY HYPERTENSION
     Route: 048
  3. FUROSEMIDE [Suspect]
     Indication: RIGHT VENTRICULAR FAILURE
     Dosage: 60 MG, 2 IN 1 D, INTRAVAENOUS (NOT OTHERWISE SPECIFIED)
     Route: 042
  4. NITRIC OXIDE (NITRIC OXIDE) (NITRIC OXIDE) [Concomitant]
  5. ASPIRIN (ACETYLSALICYLIC ACID) (ACETYLSALICYLIC ACID) [Concomitant]
  6. CLOPIDOGREL (CLOPIDOGREL) (CLOPIDOGREL) [Concomitant]
  7. ATOVASTATIN (ATORVASTATIN) (ATOVASTATION) [Concomitant]
  8. FLUTICASONE/SALMETEROL (FLUTICASON W/SALMETEROL, FLUTICASONE) [Concomitant]
  9. TIOTROPIUM (TIOTRP[IM) (TIOTROPIUM) [Concomitant]
  10. ACETYLCYSETEINE ( ACETYLSYSTEINE ) (ACETYLSYSTEINE) [Concomitant]
  11. DOMPERODPME (SOMEPERIDONE) (DOMPERIDONE) [Concomitant]
  12. VITAMIN B12 (CYANOCOBALAMIN) (CYANOCOBALAMIN) [Concomitant]
  13. FUROSMIDE (FUROSEMIDE (FUROSEMIDE) [Concomitant]

REACTIONS (6)
  - Ototoxicity [None]
  - Drug interaction [None]
  - Deafness [None]
  - Tinnitus [None]
  - Off label use [None]
  - Deafness neurosensory [None]
